FAERS Safety Report 6083276-7 (Version None)
Quarter: 2009Q1

REPORT INFORMATION
  Report Type: 
  Country: None (occurrence: None)
  Receive Date: 20090213
  Receipt Date: 20090213
  Transmission Date: 20090719
  Serious: Yes (Congenital Anomaly, Other)
  Sender: FDA-Public Use
  Company Number: None

PATIENT
  Sex: Male
  Weight: 2 kg

DRUGS (1)
  1. LOVENOX [Suspect]
     Indication: ABORTION SPONTANEOUS
     Dosage: 40MG DAILY SL
     Route: 060
     Dates: start: 20041201, end: 20050622

REACTIONS (7)
  - CARDIAC SEPTAL DEFECT [None]
  - CEREBRAL DISORDER [None]
  - LIMB DEFORMITY [None]
  - MATERNAL DRUGS AFFECTING FOETUS [None]
  - MULTIPLE CONGENITAL ABNORMALITIES [None]
  - PLAGIOCEPHALY [None]
  - RENAL DISORDER [None]
